FAERS Safety Report 25900164 (Version 2)
Quarter: 2025Q4

REPORT INFORMATION
  Report Type: Spontaneous
  Country: US (occurrence: US)
  Receive Date: 20251009
  Receipt Date: 20251025
  Transmission Date: 20260118
  Serious: Yes (Hospitalization)
  Sender: CSL BEHRING
  Company Number: US-BEH-2025221179

PATIENT
  Sex: Male

DRUGS (1)
  1. HIZENTRA [Suspect]
     Active Substance: HUMAN IMMUNOGLOBULIN G
     Indication: Myasthenia gravis
     Dosage: UNK
     Route: 065

REACTIONS (13)
  - Hospitalisation [Unknown]
  - Hypersensitivity [Recovered/Resolved]
  - Hypersensitivity [Unknown]
  - Drug ineffective for unapproved indication [Unknown]
  - General physical health deterioration [Unknown]
  - Product use in unapproved indication [Unknown]
  - Asthenia [Recovered/Resolved]
  - Feeling abnormal [Recovered/Resolved]
  - Dyspnoea [Recovered/Resolved]
  - Feeling abnormal [Unknown]
  - Asthenia [Unknown]
  - Dyspnoea [Unknown]
  - Product quality issue [Unknown]
